FAERS Safety Report 7249234 (Version 2)
Quarter: 2014Q2

REPORT INFORMATION
  Report Type: Spontaneous
  Country: FR (occurrence: None)
  Receive Date: 20091231
  Receipt Date: 20140416
  Transmission Date: 20141212
  Serious: Yes (Hospitalization, Other)
  Sender: FDA-Public Use
  Company Number: AUR-APL-2009-01625

PATIENT
  Age: 67 Year
  Sex: Male

DRUGS (2)
  1. LAMOTRIGINE [Suspect]
     Indication: EPILEPSY
     Dosage: INITIAL DOSE UNKNOWN, BUT LATER THE DOSE RAPIDLY INCREASED TO 200MG, DAILY, OVER 5 WEEKS, UNKNOWN
     Dates: start: 20040414
  2. PHENOBARBITAL (PHENOBARBITAL) [Suspect]
     Indication: EPILEPSY

REACTIONS (5)
  - Drug reaction with eosinophilia and systemic symptoms [None]
  - Hepatitis [None]
  - Renal failure [None]
  - Parasite allergy [None]
  - Interstitial lung disease [None]
